FAERS Safety Report 14201143 (Version 2)
Quarter: 2017Q4

REPORT INFORMATION
  Report Type: Spontaneous
  Country: ES (occurrence: ES)
  Receive Date: 20171117
  Receipt Date: 20171124
  Transmission Date: 20180321
  Serious: Yes (Life-Threatening, Hospitalization)
  Sender: FDA-Public Use
  Company Number: PHHY2017ES169910

PATIENT
  Sex: Female

DRUGS (1)
  1. GILENYA [Suspect]
     Active Substance: FINGOLIMOD HYDROCHLORIDE
     Indication: MULTIPLE SCLEROSIS
     Dosage: 0.5 OT, UNK
     Route: 065
     Dates: start: 20130125, end: 20171006

REACTIONS (1)
  - Adenocarcinoma gastric [Unknown]

NARRATIVE: CASE EVENT DATE: 2013
